FAERS Safety Report 16678865 (Version 2)
Quarter: 2020Q2

REPORT INFORMATION
  Report Type: Report from Study
  Country: US (occurrence: US)
  Receive Date: 20190807
  Receipt Date: 20200608
  Transmission Date: 20200713
  Serious: Yes (Other)
  Sender: FDA-Public Use
  Company Number: US-ASTELLAS-2019US031644

PATIENT
  Age: 57 Year
  Sex: Male

DRUGS (3)
  1. ASP2215 [Suspect]
     Active Substance: GILTERITINIB
     Dosage: 1 AND 1/2 TABLETS, ONCE DAILY
     Route: 048
     Dates: start: 201907
  2. ASP2215 [Suspect]
     Active Substance: GILTERITINIB
     Dosage: 80 MG, OTHER (EVERY 14 DAYS EVERY MONTH)
     Route: 048
     Dates: start: 20190627
  3. ASP2215 [Suspect]
     Active Substance: GILTERITINIB
     Indication: ACUTE MYELOID LEUKAEMIA
     Route: 048
     Dates: start: 201906

REACTIONS (4)
  - Product label issue [Unknown]
  - Haemoglobin decreased [Unknown]
  - Wrong technique in product usage process [Unknown]
  - Full blood count decreased [Unknown]

NARRATIVE: CASE EVENT DATE: 201907
